FAERS Safety Report 9844618 (Version 1)
Quarter: 2014Q1

REPORT INFORMATION
  Report Type: Spontaneous
  Country: JP (occurrence: None)
  Receive Date: 20140122
  Receipt Date: 20140122
  Transmission Date: 20141002
  Serious: No
  Sender: FDA-Public Use
  Company Number: B0954339A

PATIENT
  Age: 26 Year
  Sex: Male
  Weight: 139.71 kg

DRUGS (8)
  1. PAROXETINE HYDROCHLORIDE [Suspect]
     Indication: AUTISM SPECTRUM DISORDER
     Route: 048
  2. LAMOTRIGINE [Suspect]
     Indication: PRODUCT USED FOR UNKNOWN INDICATION
     Route: 048
     Dates: start: 20131227
  3. FLUNITRAZEPAM [Concomitant]
  4. VEGETAMIN [Concomitant]
  5. AKINETON [Concomitant]
  6. PERICYAZINE [Concomitant]
  7. CARBAMAZEPINE [Concomitant]
  8. RISPERIDONE [Concomitant]

REACTIONS (5)
  - Suicide attempt [None]
  - Confusional state [None]
  - Screaming [None]
  - Weight increased [None]
  - Diarrhoea [None]
